FAERS Safety Report 25850557 (Version 3)
Quarter: 2025Q4

REPORT INFORMATION
  Report Type: Spontaneous
  Country: US (occurrence: US)
  Receive Date: 20250926
  Receipt Date: 20251106
  Transmission Date: 20260118
  Serious: Yes (Death)
  Sender: AUTOLUS THERAPEUTICS
  Company Number: US-Autolus Ltd-2185350

PATIENT
  Age: 27 Year
  Sex: Male

DRUGS (1)
  1. AUCATZYL [Suspect]
     Active Substance: OBECABTAGENE AUTOLEUCEL
     Indication: Acute lymphocytic leukaemia
     Dates: start: 20250806, end: 20250815

REACTIONS (1)
  - Disease progression [Fatal]

NARRATIVE: CASE EVENT DATE: 20250820
